FAERS Safety Report 24746659 (Version 3)
Quarter: 2025Q1

REPORT INFORMATION
  Report Type: Report from Study
  Country: CN (occurrence: CN)
  Receive Date: 20241218
  Receipt Date: 20250115
  Transmission Date: 20250409
  Serious: Yes (Other)
  Sender: GILEAD
  Company Number: CN-GILEAD-2024-0696979

PATIENT
  Age: 35 Year
  Sex: Female

DRUGS (3)
  1. SACITUZUMAB GOVITECAN-HZIY [Suspect]
     Active Substance: SACITUZUMAB GOVITECAN-HZIY
     Indication: Breast cancer
     Dosage: 540 MG, Q3WK, DAY1 AND DAY8 VIA  INTRAVENOUS DRIP, EVERY THREE WEEKS (Q3W)
     Route: 041
     Dates: start: 20241210
  2. SACITUZUMAB GOVITECAN-HZIY [Suspect]
     Active Substance: SACITUZUMAB GOVITECAN-HZIY
     Dosage: 540 MG, Q3WK, DAY 1, DAY 8 VIA  INTRAVENOUS DRIP, ONCE EVERY THREE WEEKS REGIMEN
     Route: 041
     Dates: start: 20241217
  3. SACITUZUMAB GOVITECAN-HZIY [Suspect]
     Active Substance: SACITUZUMAB GOVITECAN-HZIY
     Dosage: 540 MG, 540MG, D1, D8, INTRAVENOUS DRIP, Q3Y
     Route: 041
     Dates: start: 20241231

REACTIONS (4)
  - Hepatic failure [Unknown]
  - Metastases to lymph nodes [Unknown]
  - Metastases to bone [Unknown]
  - Metastases to lung [Unknown]

NARRATIVE: CASE EVENT DATE: 20241201
